FAERS Safety Report 5330530-X (Version None)
Quarter: 2007Q2

REPORT INFORMATION
  Report Type: 
  Country: None (occurrence: None)
  Receive Date: 20070521
  Receipt Date: 20070511
  Transmission Date: 20071010
  Serious: Yes (Other)
  Sender: FDA-Public Use
  Company Number: US-MERCK-0703USA03698

PATIENT
  Age: 47 Year
  Sex: Male
  Weight: 61 kg

DRUGS (38)
  1. EMEND [Suspect]
     Indication: PROPHYLAXIS OF NAUSEA AND VOMITING
     Route: 048
  2. EMEND [Suspect]
     Route: 048
  3. ETOPOSIDE [Concomitant]
     Indication: SMALL CELL LUNG CANCER STAGE UNSPECIFIED
     Route: 042
     Dates: start: 20060927, end: 20060929
  4. ETOPOSIDE [Concomitant]
     Route: 042
     Dates: start: 20061024, end: 20061026
  5. ETOPOSIDE [Concomitant]
     Route: 042
     Dates: start: 20061115, end: 20061117
  6. ETOPOSIDE [Concomitant]
     Route: 042
     Dates: start: 20061205, end: 20061207
  7. ETOPOSIDE [Concomitant]
     Route: 042
     Dates: start: 20070213, end: 20070215
  8. ETOPOSIDE [Concomitant]
     Route: 042
     Dates: start: 20070313, end: 20070313
  9. CISPLATIN [Concomitant]
     Indication: SMALL CELL LUNG CANCER STAGE UNSPECIFIED
     Route: 042
     Dates: start: 20060927, end: 20060927
  10. CISPLATIN [Concomitant]
     Route: 042
     Dates: start: 20061115, end: 20061115
  11. CISPLATIN [Concomitant]
     Route: 042
     Dates: start: 20061024, end: 20061024
  12. CISPLATIN [Concomitant]
     Route: 042
     Dates: start: 20061205, end: 20061205
  13. CISPLATIN [Concomitant]
     Route: 042
     Dates: start: 20070213, end: 20070213
  14. ONDANSETRON [Concomitant]
     Indication: PROPHYLAXIS OF NAUSEA AND VOMITING
     Route: 048
     Dates: start: 20060927, end: 20060927
  15. ONDANSETRON [Concomitant]
     Route: 048
     Dates: start: 20061024, end: 20061024
  16. ONDANSETRON [Concomitant]
     Route: 048
     Dates: start: 20061115, end: 20061115
  17. ONDANSETRON [Concomitant]
     Route: 048
     Dates: start: 20061205, end: 20061205
  18. ONDANSETRON [Concomitant]
     Route: 048
     Dates: start: 20070213, end: 20070213
  19. ONDANSETRON [Concomitant]
     Route: 048
     Dates: start: 20070313, end: 20070313
  20. DECADRON [Concomitant]
     Indication: PROPHYLAXIS OF NAUSEA AND VOMITING
     Route: 048
     Dates: start: 20060927, end: 20060927
  21. DECADRON [Concomitant]
     Route: 048
     Dates: start: 20061024, end: 20061024
  22. DECADRON [Concomitant]
     Route: 048
     Dates: start: 20061115, end: 20061115
  23. DECADRON [Concomitant]
     Route: 048
     Dates: start: 20061205, end: 20061205
  24. DECADRON [Concomitant]
     Route: 048
     Dates: start: 20070213, end: 20070213
  25. DECADRON [Concomitant]
     Route: 048
     Dates: start: 20070313, end: 20070313
  26. DECADRON [Concomitant]
     Route: 048
     Dates: start: 20060928, end: 20060929
  27. DECADRON [Concomitant]
     Route: 048
     Dates: start: 20061025, end: 20061026
  28. DECADRON [Concomitant]
     Route: 048
     Dates: start: 20061116, end: 20061117
  29. DECADRON [Concomitant]
     Route: 048
     Dates: start: 20061206, end: 20061207
  30. DECADRON [Concomitant]
     Route: 048
     Dates: start: 20070214, end: 20070215
  31. DARBEPOETIN ALFA [Concomitant]
     Indication: ANAEMIA
     Route: 058
     Dates: start: 20060927, end: 20060927
  32. DARBEPOETIN ALFA [Concomitant]
     Route: 058
     Dates: start: 20061205, end: 20061205
  33. DARBEPOETIN ALFA [Concomitant]
     Route: 058
     Dates: start: 20070213, end: 20070213
  34. PROCHLORPERAZINE [Concomitant]
     Indication: PROPHYLAXIS OF NAUSEA AND VOMITING
     Route: 048
     Dates: start: 20060928, end: 20060929
  35. PROCHLORPERAZINE [Concomitant]
     Route: 048
     Dates: start: 20061025, end: 20061026
  36. PROCHLORPERAZINE [Concomitant]
     Route: 048
     Dates: start: 20061116, end: 20061117
  37. PROCHLORPERAZINE [Concomitant]
     Route: 048
     Dates: start: 20061206, end: 20061207
  38. PROCHLORPERAZINE [Concomitant]
     Route: 048
     Dates: start: 20070214, end: 20070215

REACTIONS (3)
  - HAEMOGLOBIN DECREASED [None]
  - HYPONATRAEMIA [None]
  - NEUTROPENIA [None]
